FAERS Safety Report 8969315 (Version 1)
Quarter: 2012Q4

REPORT INFORMATION
  Report Type: 
  Country: US (occurrence: US)
  Receive Date: 20121217
  Receipt Date: 20121217
  Transmission Date: 20130627
  Serious: Yes (Other)
  Sender: FDA-Public Use
  Company Number: US-BAYER-2012-130690

PATIENT
  Age: 33 Year
  Sex: Female

DRUGS (1)
  1. GADAVIST [Suspect]
     Indication: MRI
     Dosage: 10 ml, UNK
     Route: 040
     Dates: start: 20121211, end: 20121211

REACTIONS (5)
  - Chest discomfort [None]
  - Erythema [None]
  - Erythema [None]
  - Urticaria [None]
  - Pruritus [None]
